FAERS Safety Report 13998011 (Version 1)
Quarter: 2017Q3

REPORT INFORMATION
  Report Type: Spontaneous
  Country: US (occurrence: US)
  Receive Date: 20170921
  Receipt Date: 20170921
  Transmission Date: 20171128
  Serious: Yes (Other)
  Sender: FDA-Public Use
  Company Number: US-APOTEX-2017AP018411

PATIENT
  Age: 21 Year
  Sex: Female

DRUGS (2)
  1. SULINDAC. [Suspect]
     Active Substance: SULINDAC
     Indication: DESMOID TUMOUR
     Route: 065
  2. CELECOXIB. [Suspect]
     Active Substance: CELECOXIB
     Indication: DESMOID TUMOUR
     Dosage: UNK
     Route: 065

REACTIONS (1)
  - Drug ineffective [Unknown]
